FAERS Safety Report 8928271 (Version 1)
Quarter: 2012Q4

REPORT INFORMATION
  Report Type: 
  Country: GB (occurrence: GB)
  Receive Date: 20121128
  Receipt Date: 20121128
  Transmission Date: 20130627
  Serious: Yes (Hospitalization, Other)
  Sender: FDA-Public Use
  Company Number: GB-PFIZER INC-2006122835

PATIENT
  Age: 13 Month
  Sex: Male
  Weight: 12 kg

DRUGS (12)
  1. IBUPROFEN [Suspect]
     Dosage: 50 mg, as necessary
     Route: 048
     Dates: start: 20060727, end: 20060801
  2. ACETYLSALICYLIC ACID [Concomitant]
     Dosage: 60 MG  1/1 DAYS
     Dates: start: 20060804
  3. BECLOMETASONE [Concomitant]
     Dosage: 100 MICROGRAMS 2/1 DAYS
     Route: 055
  4. BENZYLPENICILLIN [Concomitant]
     Dosage: 300MG 4/1 DAYS
     Route: 042
     Dates: start: 20060727, end: 20060729
  5. CEFTRIAXONE SODIUM [Concomitant]
     Dosage: 600MG
     Route: 042
     Dates: start: 20060801, end: 20060808
  6. AMOXICILLIN TRIHYDRATE, CLAVULANIC ACID [Concomitant]
     Dosage: 360MG 4/1 DAYS
     Route: 042
     Dates: start: 20060730, end: 20060730
  7. BENZYDAMINE HCL [Concomitant]
     Indication: SORE THROAT
     Route: 048
     Dates: start: 20060730, end: 20060801
  8. FLUCLOXACILLIN [Concomitant]
     Dosage: 300MG 4/1DAYS
     Route: 042
     Dates: start: 20060727, end: 20060729
  9. NYSTATIN [Concomitant]
     Dosage: 4/1 DAYS
     Route: 048
     Dates: start: 20060731, end: 20060801
  10. PARACETAMOL [Concomitant]
     Indication: PYREXIA
     Dosage: 180MG
     Route: 048
     Dates: start: 20060727, end: 20060802
  11. CHLORPHENAMINE MALEATE [Concomitant]
     Dosage: 1MG AS NECESSARY
     Route: 048
     Dates: start: 20060804, end: 20060806
  12. SALBUTAMOL SULFATE [Concomitant]
     Dosage: AS NECESSARY

REACTIONS (6)
  - Renal impairment [Recovered/Resolved]
  - Dehydration [Recovered/Resolved]
  - Feeding disorder [Not Recovered/Not Resolved]
  - Proteinuria [Not Recovered/Not Resolved]
  - Pyrexia [Not Recovered/Not Resolved]
  - Oedema [Recovered/Resolved]
